FAERS Safety Report 7465774-4 (Version None)
Quarter: 2011Q2

REPORT INFORMATION
  Report Type: 
  Country: None (occurrence: None)
  Receive Date: 20110428
  Receipt Date: 20110412
  Transmission Date: 20111010
  Serious: Yes (Other)
  Sender: FDA-Public Use
  Company Number: 2011AP000708

PATIENT
  Age: 54 Year
  Sex: Male

DRUGS (5)
  1. CARBIDOPA + LEVODOPA [Concomitant]
  2. ARIPIPRAZOLE [Suspect]
     Indication: SCHIZOPHRENIA
     Dosage: 15 MG, QD
  3. LITHIUM CARBONATE [Suspect]
     Indication: SCHIZOPHRENIA
     Dosage: 600 MG, QD
  4. CLOZAPINE [Concomitant]
  5. QUETIAPINE [Concomitant]

REACTIONS (2)
  - PARKINSONISM [None]
  - CONDITION AGGRAVATED [None]
